FAERS Safety Report 5802563-8 (Version None)
Quarter: 2008Q3

REPORT INFORMATION
  Report Type: 
  Country: None (occurrence: None)
  Receive Date: 20080708
  Receipt Date: 20080625
  Transmission Date: 20090109
  Serious: Yes (Other)
  Sender: FDA-Public Use
  Company Number: PHHY2008BR03891

PATIENT
  Age: 13 Year
  Sex: Male
  Weight: 47 kg

DRUGS (4)
  1. RITALIN LA [Suspect]
     Indication: ATTENTION DEFICIT/HYPERACTIVITY DISORDER
     Dosage: 20 MG, QD
     Route: 048
     Dates: start: 20040301, end: 20070101
  2. RITALIN LA [Suspect]
     Dates: start: 20080208
  3. RITALIN [Suspect]
     Dosage: 10 MG, BID
  4. TOFRANIL [Concomitant]
     Dosage: 1 TABLET/DAY
     Route: 048

REACTIONS (12)
  - AGITATION [None]
  - ANOREXIA [None]
  - COLD SWEAT [None]
  - DEPRESSED MOOD [None]
  - DISTURBANCE IN ATTENTION [None]
  - DRUG INEFFECTIVE [None]
  - EUPHORIC MOOD [None]
  - HYPERHIDROSIS [None]
  - INSOMNIA [None]
  - LOSS OF CONSCIOUSNESS [None]
  - PERIPHERAL COLDNESS [None]
  - SOMNOLENCE [None]
